FAERS Safety Report 24004491 (Version 1)
Quarter: 2024Q2

REPORT INFORMATION
  Report Type: Report from Study
  Country: US (occurrence: US)
  Receive Date: 20240624
  Receipt Date: 20240624
  Transmission Date: 20240716
  Serious: Yes (Other)
  Sender: FDA-Public Use
  Company Number: US-ABBVIE-5811759

PATIENT
  Age: 48 Year
  Sex: Female

DRUGS (1)
  1. HUMIRA [Suspect]
     Active Substance: ADALIMUMAB
     Indication: Rheumatoid arthritis
     Dosage: CITRATE FREE?FORM STRENGTH: 40 MILLIGRAMS
     Route: 058
     Dates: start: 20230115, end: 20240606

REACTIONS (2)
  - Retinal tear [Unknown]
  - Retinal tear [Not Recovered/Not Resolved]

NARRATIVE: CASE EVENT DATE: 20240401
